FAERS Safety Report 9734990 (Version 2)
Quarter: 2014Q1

REPORT INFORMATION
  Report Type: Report from Study
  Country: JP (occurrence: JP)
  Receive Date: 20131206
  Receipt Date: 20140203
  Transmission Date: 20141002
  Serious: Yes (Death, Hospitalization, Disabling, Other)
  Sender: FDA-Public Use
  Company Number: JP-AMGEN-JPNCT2013085708

PATIENT
  Age: 68 Year
  Sex: Male
  Weight: 61 kg

DRUGS (16)
  1. DARBEPOETIN ALFA [Suspect]
     Indication: NEPHROGENIC ANAEMIA
     Dosage: 30 MUG, QD
     Route: 040
     Dates: start: 20101102
  2. WARFARIN [Concomitant]
     Dosage: UNK
     Route: 048
  3. PARIET [Concomitant]
     Dosage: UNK
     Route: 048
  4. CONIEL [Concomitant]
     Dosage: UNK
     Route: 048
  5. ZYLORIC [Concomitant]
     Dosage: UNK
     Route: 048
  6. DIOVAN [Concomitant]
     Dosage: UNK
     Route: 048
  7. URINORM [Concomitant]
     Dosage: UNK
     Route: 048
  8. ACTOS [Concomitant]
     Dosage: UNK
     Route: 048
  9. LASIX                              /00032601/ [Concomitant]
     Dosage: UNK
     Route: 048
  10. JUSO [Concomitant]
     Dosage: UNK
     Route: 048
  11. DIART [Concomitant]
     Dosage: UNK
     Route: 048
  12. LIPITOR [Concomitant]
     Dosage: UNK
     Route: 048
  13. ARGAMATE [Concomitant]
     Dosage: UNK
     Route: 048
  14. DIGILANOGEN C                      /00007201/ [Concomitant]
     Dosage: UNK
     Route: 065
  15. ZOSYN [Concomitant]
     Dosage: UNK
     Route: 065
  16. ZYVOX [Concomitant]
     Dosage: UNK
     Route: 041

REACTIONS (5)
  - Pneumonia [Fatal]
  - Hyperkalaemia [Recovered/Resolved]
  - Cerebral infarction [Recovered/Resolved with Sequelae]
  - Cardiac failure congestive [Recovered/Resolved]
  - Cardiac failure congestive [Recovered/Resolved]
